FAERS Safety Report 6141321-4 (Version None)
Quarter: 2009Q2

REPORT INFORMATION
  Report Type: 
  Country: None (occurrence: None)
  Receive Date: 20090401
  Receipt Date: 20090401
  Transmission Date: 20091009
  Serious: Yes (Death)
  Sender: FDA-Public Use
  Company Number: None

PATIENT
  Age: 72 Year
  Sex: Male
  Weight: 97.977 kg

DRUGS (3)
  1. DIOVAN HCT [Suspect]
     Indication: HYPERTENSION
     Dosage: APPROX. DATES
     Dates: start: 20050701, end: 20051201
  2. ZESTRIL [Suspect]
  3. HYDROCHLOROTHIAZIDE [Suspect]

REACTIONS (13)
  - BLOOD DISORDER [None]
  - CD8 LYMPHOCYTES INCREASED [None]
  - HERPES OPHTHALMIC [None]
  - HERPES ZOSTER [None]
  - HYPOTENSION [None]
  - LYMPHADENOPATHY [None]
  - MALAISE [None]
  - MYCOSIS FUNGOIDES [None]
  - NEOPLASM MALIGNANT [None]
  - ORGAN FAILURE [None]
  - SKIN DISORDER [None]
  - SKIN EXFOLIATION [None]
  - WEIGHT DECREASED [None]
